FAERS Safety Report 9856804 (Version 1)
Quarter: 2014Q1

REPORT INFORMATION
  Report Type: Spontaneous
  Country: US (occurrence: None)
  Receive Date: 20140128
  Receipt Date: 20140128
  Transmission Date: 20141002
  Serious: Yes (Hospitalization)
  Sender: FDA-Public Use
  Company Number: 2014P1000402

PATIENT
  Age: 42 Year
  Sex: Male
  Weight: 90 kg

DRUGS (7)
  1. TESTOSTERONE CYPIONATE [Suspect]
  2. TESTOSTERONE ENANTHATE [Suspect]
  3. TESTOSTERONE ACETATE [Suspect]
  4. TESTOSTERONE DECANOATE [Suspect]
  5. TESTOSTERONE PROPIONATE [Suspect]
  6. TESTOSTERONE PHENYLPROPIONATE [Suspect]
  7. TESTOSTERONE ISOCAPROATE [Suspect]

REACTIONS (19)
  - Nausea [None]
  - Vomiting [None]
  - Diarrhoea [None]
  - Dyspnoea [None]
  - Productive cough [None]
  - Hypoxia [None]
  - Supraventricular tachycardia [None]
  - Atrial flutter [None]
  - Pneumonia [None]
  - Acute respiratory distress syndrome [None]
  - Hypotension [None]
  - Aspartate aminotransferase increased [None]
  - Alanine aminotransferase increased [None]
  - Renal failure acute [None]
  - Fluid overload [None]
  - Haemodialysis [None]
  - Drug abuse [None]
  - Systemic inflammatory response syndrome [None]
  - Multi-organ failure [None]
